FAERS Safety Report 5660288-6 (Version None)
Quarter: 2008Q1

REPORT INFORMATION
  Report Type: 
  Country: None (occurrence: None)
  Receive Date: 20080213
  Receipt Date: 20070621
  Transmission Date: 20080703
  Serious: Yes (Other)
  Sender: FDA-Public Use
  Company Number: 2007-02981

PATIENT
  Sex: Female

DRUGS (1)
  1. ALORA [Suspect]
     Dosage: TRANSDERMAL
     Route: 062

REACTIONS (1)
  - GALLBLADDER DISORDER [None]
